FAERS Safety Report 21606775 (Version 1)
Quarter: 2022Q4

REPORT INFORMATION
  Report Type: Spontaneous
  Country: US (occurrence: US)
  Receive Date: 20221117
  Receipt Date: 20221117
  Transmission Date: 20230113
  Serious: Yes (Hospitalization, Other)
  Sender: FDA-Public Use
  Company Number: US-BRISTOL-MYERS SQUIBB COMPANY-2022-138389

PATIENT
  Age: 75 Year
  Sex: Male

DRUGS (1)
  1. REVLIMID [Suspect]
     Active Substance: LENALIDOMIDE
     Indication: Plasma cell myeloma
     Dosage: FREQUENCY: ONE CAPSULE BY MOUTH DAILY X 21 DAYS, THEN OFF 7 DAYS
     Route: 048
     Dates: start: 2021, end: 20221028

REACTIONS (2)
  - Infection [Unknown]
  - Hip fracture [Unknown]

NARRATIVE: CASE EVENT DATE: 20221028
